FAERS Safety Report 8359515-6 (Version None)
Quarter: 2012Q2

REPORT INFORMATION
  Report Type: 
  Country: None (occurrence: None)
  Receive Date: 20120515
  Receipt Date: 20120503
  Transmission Date: 20120825
  Serious: Yes (Death)
  Sender: FDA-Public Use
  Company Number: PT-CELGENEUS-130-21880-12050347

PATIENT
  Age: 73 Year
  Sex: Male

DRUGS (3)
  1. REVLIMID [Suspect]
     Route: 048
     Dates: start: 20110401, end: 20110501
  2. DEXAMETHASONE [Concomitant]
     Indication: PALLIATIVE CARE
  3. DEXAMETHASONE [Concomitant]
     Route: 065
     Dates: start: 20110401

REACTIONS (3)
  - MULTIPLE MYELOMA [None]
  - DEATH [None]
  - RENAL MASS [None]
